FAERS Safety Report 21958052 (Version 2)
Quarter: 2023Q2

REPORT INFORMATION
  Report Type: Spontaneous
  Country: FR (occurrence: FR)
  Receive Date: 20230206
  Receipt Date: 20230413
  Transmission Date: 20230722
  Serious: Yes (Other)
  Sender: FDA-Public Use
  Company Number: None

PATIENT
  Age: 44 Year
  Sex: Female
  Weight: 66 kg

DRUGS (1)
  1. MIRENA [Suspect]
     Active Substance: LEVONORGESTREL
     Indication: Contraception
     Dosage: 20?G/DAY
     Route: 015
     Dates: start: 20150319, end: 20220913

REACTIONS (7)
  - Genital herpes [Recovered/Resolved]
  - Affective disorder [Recovering/Resolving]
  - Weight increased [Recovering/Resolving]
  - Breast calcifications [Recovering/Resolving]
  - Headache [Recovered/Resolved]
  - Ovarian cyst [Recovering/Resolving]
  - Dyspareunia [Recovering/Resolving]

NARRATIVE: CASE EVENT DATE: 20160101
